FAERS Safety Report 24256509 (Version 1)
Quarter: 2024Q3

REPORT INFORMATION
  Report Type: Spontaneous
  Country: GB (occurrence: GB)
  Receive Date: 20240828
  Receipt Date: 20240828
  Transmission Date: 20241017
  Serious: Yes (Other)
  Sender: ROCHE
  Company Number: GB-002147023-NVSC2024GB169528

PATIENT
  Age: 41 Year
  Sex: Female

DRUGS (1)
  1. XOLAIR [Suspect]
     Active Substance: OMALIZUMAB
     Indication: Chronic spontaneous urticaria
     Dosage: UNK (INJECTION)
     Route: 065

REACTIONS (8)
  - Angioedema [Unknown]
  - Urticaria [Unknown]
  - Pruritus [Unknown]
  - Swelling [Unknown]
  - Insomnia [Unknown]
  - Pain [Unknown]
  - Skin burning sensation [Unknown]
  - Drug ineffective [Unknown]
